FAERS Safety Report 23786006 (Version 1)
Quarter: 2024Q2

REPORT INFORMATION
  Report Type: Spontaneous
  Country: CA (occurrence: CA)
  Receive Date: 20240426
  Receipt Date: 20240426
  Transmission Date: 20240716
  Serious: Yes (Death)
  Sender: FDA-Public Use
  Company Number: CA-JNJFOC-20240474821

PATIENT
  Age: 62 Year
  Sex: Male

DRUGS (1)
  1. RISPERDAL [Suspect]
     Active Substance: RISPERIDONE
     Indication: Alcohol detoxification
     Route: 065

REACTIONS (5)
  - Accidental death [Fatal]
  - Cardio-respiratory arrest [Fatal]
  - Electrocardiogram QT prolonged [Fatal]
  - Ventricular arrhythmia [Fatal]
  - Off label use [Unknown]
